FAERS Safety Report 8051360-4 (Version None)
Quarter: 2012Q1

REPORT INFORMATION
  Report Type: 
  Country: None (occurrence: None)
  Receive Date: 20120117
  Receipt Date: 20120109
  Transmission Date: 20120608
  Serious: Yes (Other)
  Sender: FDA-Public Use
  Company Number: DE-ROCHE-1015776

PATIENT
  Sex: Male
  Weight: 112 kg

DRUGS (8)
  1. DELIX [Concomitant]
     Indication: HYPERTENSION
     Route: 048
  2. DIGITOXIN TAB [Concomitant]
     Route: 048
  3. PREDNISOLONE [Concomitant]
     Indication: POLYARTHRITIS
     Route: 048
  4. INDOMETHACIN [Concomitant]
     Route: 048
  5. ACTEMRA [Suspect]
     Indication: POLYARTHRITIS
     Dosage: 800-400 MG
     Route: 042
     Dates: start: 20100623, end: 20111117
  6. METOPROLOL SUCCINATE [Concomitant]
     Indication: HYPERTENSION
     Route: 048
  7. PANTOZOL [Concomitant]
     Route: 048
  8. LERCANIDIPINE [Concomitant]
     Indication: HYPERTENSION
     Route: 048

REACTIONS (3)
  - POLYARTHRITIS [None]
  - ARRHYTHMIA [None]
  - BLOOD PRESSURE DECREASED [None]
